FAERS Safety Report 24332731 (Version 1)
Quarter: 2024Q3

REPORT INFORMATION
  Report Type: Spontaneous
  Country: US (occurrence: None)
  Receive Date: 20240917
  Receipt Date: 20240917
  Transmission Date: 20241016
  Serious: Yes (Life-Threatening)
  Sender: Public
  Company Number: None

PATIENT
  Age: 78 Year
  Sex: Female
  Weight: 78.75 kg

DRUGS (6)
  1. ALBUTEROL SULFATE [Suspect]
     Active Substance: ALBUTEROL SULFATE
     Indication: Asthma
     Dosage: OTHER STRENGTH : 90 MCG/HFA-134A;?OTHER QUANTITY : 1 INHALATION(S);?FREQUENCY : AS NEEDED;?
     Route: 055
     Dates: start: 20240703, end: 202409
  2. LANSOPRAZOLE [Concomitant]
     Active Substance: LANSOPRAZOLE
  3. LEVOTHYROXINE [Concomitant]
     Active Substance: LEVOTHYROXINE\LEVOTHYROXINE SODIUM
  4. LOSARTON [Concomitant]
  5. FLUTICASONE PROPIONATE\SALMETEROL XINAFOATE [Concomitant]
     Active Substance: FLUTICASONE PROPIONATE\SALMETEROL XINAFOATE
  6. VITAMIN C [Concomitant]
     Active Substance: ASCORBIC ACID

REACTIONS (8)
  - Heart rate increased [None]
  - Blood pressure increased [None]
  - Dyspnoea [None]
  - Anxiety [None]
  - Fear [None]
  - Dizziness [None]
  - Sleep deficit [None]
  - Nausea [None]

NARRATIVE: CASE EVENT DATE: 20240910
